FAERS Safety Report 19808976 (Version 1)
Quarter: 2021Q3

REPORT INFORMATION
  Report Type: Spontaneous
  Country: US (occurrence: US)
  Receive Date: 20210908
  Receipt Date: 20210908
  Transmission Date: 20211014
  Serious: No
  Sender: FDA-Public Use
  Company Number: US-BAUSCH-BL-2021-026959

PATIENT
  Age: 62 Year
  Sex: Female

DRUGS (5)
  1. OMEPRAZOLE. [Concomitant]
     Active Substance: OMEPRAZOLE
     Indication: PRODUCT USED FOR UNKNOWN INDICATION
  2. PRAVASTATIN. [Concomitant]
     Active Substance: PRAVASTATIN
     Indication: PRODUCT USED FOR UNKNOWN INDICATION
  3. DUOBRII [Suspect]
     Active Substance: HALOBETASOL PROPIONATE\TAZAROTENE
     Indication: PSORIASIS
  4. DOXYCYCLINE. [Concomitant]
     Active Substance: DOXYCYCLINE
     Indication: PRODUCT USED FOR UNKNOWN INDICATION
  5. DUOBRII [Suspect]
     Active Substance: HALOBETASOL PROPIONATE\TAZAROTENE
     Indication: ECZEMA
     Dosage: 0.01 PERCENT, STARTED APPROXIMATELY 2 YEARS AGO (A COUPLE OF TIMES A WEEK)
     Route: 061

REACTIONS (6)
  - Eczema [Unknown]
  - Psoriasis [Unknown]
  - Condition aggravated [Unknown]
  - Patient dissatisfaction with treatment [Unknown]
  - Product physical consistency issue [Unknown]
  - Product quality issue [Unknown]

NARRATIVE: CASE EVENT DATE: 202106
